FAERS Safety Report 26162754 (Version 1)
Quarter: 2025Q4

REPORT INFORMATION
  Report Type: Spontaneous
  Country: US (occurrence: None)
  Receive Date: 20251215
  Receipt Date: 20251215
  Transmission Date: 20260117
  Serious: Yes (Disabling)
  Sender: FDA-CTU
  Company Number: None

PATIENT
  Age: 23 Year
  Sex: Female
  Weight: 56.7 kg

DRUGS (1)
  1. IUD NOS [Suspect]
     Active Substance: COPPER OR LEVONORGESTREL

REACTIONS (3)
  - Infertility [None]
  - Endometrial atrophy [None]
  - Asherman^s syndrome [None]

NARRATIVE: CASE EVENT DATE: 20170101
